FAERS Safety Report 6064999-2 (Version None)
Quarter: 2009Q1

REPORT INFORMATION
  Report Type: 
  Country: None (occurrence: None)
  Receive Date: 20090203
  Receipt Date: 20090203
  Transmission Date: 20090719
  Serious: No
  Sender: FDA-Public Use
  Company Number: None

PATIENT
  Age: 48 Year
  Sex: Female

DRUGS (1)
  1. THYROID TAB [Suspect]
     Indication: HYPOTHYROIDISM
     Dosage: 1 TABLET DAILY

REACTIONS (4)
  - ABDOMINAL PAIN UPPER [None]
  - DYSGEUSIA [None]
  - NAUSEA [None]
  - VOMITING [None]
